FAERS Safety Report 16851701 (Version 2)
Quarter: 2020Q2

REPORT INFORMATION
  Report Type: Spontaneous
  Country: CA (occurrence: CA)
  Receive Date: 20190925
  Receipt Date: 20200520
  Transmission Date: 20200713
  Serious: Yes (Other)
  Sender: FDA-Public Use
  Company Number: CA-SUNOVION-2019SUN003952

PATIENT
  Age: 71 Year
  Sex: Female

DRUGS (9)
  1. APTIOM [Suspect]
     Active Substance: ESLICARBAZEPINE ACETATE
     Indication: NEURALGIA
     Dosage: 400 MG
     Route: 048
     Dates: end: 201911
  2. APTIOM [Suspect]
     Active Substance: ESLICARBAZEPINE ACETATE
     Dosage: 400 MG, HS
     Route: 048
     Dates: start: 20190916
  3. BACLOFEN. [Concomitant]
     Active Substance: BACLOFEN
     Dosage: 10 MG, BID
     Route: 048
  4. BUTRANS [Concomitant]
     Active Substance: BUPRENORPHINE
     Dosage: 10 MG, QD
     Route: 065
  5. APTIOM [Suspect]
     Active Substance: ESLICARBAZEPINE ACETATE
     Dosage: 200 MG, HS
     Route: 048
  6. APTIOM [Suspect]
     Active Substance: ESLICARBAZEPINE ACETATE
     Dosage: 200 MG
     Route: 048
  7. PREGABALIN. [Concomitant]
     Active Substance: PREGABALIN
     Dosage: 50 MG, TID
     Route: 048
  8. HYDROMORPHONE [Concomitant]
     Active Substance: HYDROMORPHONE
     Dosage: 3 MG, QID
     Route: 048
  9. CYMBALTA [Concomitant]
     Active Substance: DULOXETINE HYDROCHLORIDE
     Dosage: 60 MG, QD
     Route: 048

REACTIONS (11)
  - Mental impairment [Not Recovered/Not Resolved]
  - Off label use [Unknown]
  - Intentional product use issue [Unknown]
  - Drug effective for unapproved indication [Unknown]
  - Confusional state [Unknown]
  - Therapy interrupted [Unknown]
  - Hypersomnia [Not Recovered/Not Resolved]
  - Prescribed underdose [Unknown]
  - Dizziness [Not Recovered/Not Resolved]
  - Decreased appetite [Not Recovered/Not Resolved]
  - Drug ineffective for unapproved indication [Unknown]

NARRATIVE: CASE EVENT DATE: 20190918
